FAERS Safety Report 10348925 (Version 2)
Quarter: 2014Q3

REPORT INFORMATION
  Report Type: Spontaneous
  Country: FR (occurrence: FR)
  Receive Date: 20140729
  Receipt Date: 20140729
  Transmission Date: 20150326
  Serious: Yes (Life-Threatening, Other)
  Sender: FDA-Public Use
  Company Number: FR-GILEAD-2014-0102257

PATIENT
  Age: 14 Year
  Sex: Female

DRUGS (4)
  1. VISTIDE [Suspect]
     Active Substance: CIDOFOVIR
     Indication: VIRAL HAEMORRHAGIC CYSTITIS
     Dosage: 75 MG/ML, UNK
     Route: 042
     Dates: start: 201403
  2. CICLOSPORINE [Suspect]
     Active Substance: CYCLOSPORINE
     Dosage: UNK
     Route: 048
     Dates: end: 20140406
  3. BENEMIDE [Suspect]
     Active Substance: PROBENECID
     Indication: PROPHYLAXIS
     Dosage: UNK
     Route: 065
     Dates: start: 20140308
  4. VISTIDE [Suspect]
     Active Substance: CIDOFOVIR
     Indication: CYSTITIS HAEMORRHAGIC
     Dosage: UNK
     Route: 042
     Dates: start: 20140308

REACTIONS (2)
  - Renal failure acute [Recovered/Resolved]
  - Off label use [Unknown]

NARRATIVE: CASE EVENT DATE: 201403
